FAERS Safety Report 9665293 (Version 1)
Quarter: 2013Q4

REPORT INFORMATION
  Report Type: Spontaneous
  Country: US (occurrence: US)
  Receive Date: 20131101
  Receipt Date: 20131101
  Transmission Date: 20140711
  Serious: No
  Sender: FDA-Public Use
  Company Number: US-PFIZER INC-2013311889

PATIENT
  Age: 68 Year
  Sex: Female
  Weight: 66.21 kg

DRUGS (8)
  1. XELJANZ [Suspect]
     Indication: RHEUMATOID ARTHRITIS
     Dosage: 5MG (1 TABLET) TWICE DAILY
     Route: 048
     Dates: start: 201308, end: 201310
  2. PREDNISONE [Concomitant]
     Dosage: UNK
  3. OMEPRAZOLE [Concomitant]
     Dosage: UNK
  4. SERTRALINE [Concomitant]
     Dosage: UNK
  5. CYCLOBENZAPRINE [Concomitant]
     Dosage: UNK
  6. HYDROCODONE/ACETAMINOPHEN [Concomitant]
     Dosage: UNK
  7. BIOTIN [Concomitant]
     Dosage: 5000
  8. TRIAMTERENE/ HYDROCHLOROTHIAZIDE [Concomitant]
     Dosage: UNK

REACTIONS (1)
  - Weight increased [Unknown]
